FAERS Safety Report 4558894-5 (Version None)
Quarter: 2005Q1

REPORT INFORMATION
  Report Type: 
  Country: None (occurrence: None)
  Receive Date: 20050121
  Receipt Date: 20050121
  Transmission Date: 20050727
  Serious: Yes (Life-Threatening, Hospitalization)
  Sender: FDA-Public Use
  Company Number: None

PATIENT
  Age: 65 Year
  Sex: Male
  Weight: 92.9874 kg

DRUGS (2)
  1. DILANTIN KAPSEAL [Suspect]
     Indication: STEVENS-JOHNSON SYNDROME
     Dosage: 300 MG BID ORAL
     Route: 048
     Dates: start: 20041113, end: 20041230
  2. AMOXICILLIN [Suspect]
     Dosage: 250 MG QID ORAL
     Route: 048
     Dates: start: 20041220, end: 20041221

REACTIONS (6)
  - BLOOD GLUCOSE ABNORMAL [None]
  - BODY TEMPERATURE INCREASED [None]
  - DYSPHAGIA [None]
  - HYPERTENSION [None]
  - PHARYNGOLARYNGEAL PAIN [None]
  - RASH [None]
